FAERS Safety Report 7155853-3 (Version None)
Quarter: 2010Q4

REPORT INFORMATION
  Report Type: 
  Country: None (occurrence: None)
  Receive Date: 20101123
  Receipt Date: 20101012
  Transmission Date: 20110411
  Serious: No
  Sender: FDA-Public Use
  Company Number: 011275

PATIENT
  Sex: Female
  Weight: 90.7 kg

DRUGS (1)
  1. CIMZIA [Suspect]
     Indication: CROHN'S DISEASE
     Dosage: SUBCUTANEOUS
     Route: 058

REACTIONS (5)
  - EAR PAIN [None]
  - NASAL DISCOMFORT [None]
  - ORAL PAIN [None]
  - RASH [None]
  - UPPER RESPIRATORY TRACT INFECTION [None]
